FAERS Safety Report 11674954 (Version 1)
Quarter: 2015Q4

REPORT INFORMATION
  Report Type: Spontaneous
  Country: US (occurrence: US)
  Receive Date: 20151028
  Receipt Date: 20151028
  Transmission Date: 20160304
  Serious: Yes (Other)
  Sender: FDA-Public Use
  Company Number: US-PFIZER INC-2015358214

PATIENT
  Age: 47 Year
  Sex: Female
  Weight: 76 kg

DRUGS (1)
  1. NEURONTIN [Suspect]
     Active Substance: GABAPENTIN
     Indication: SPINAL OSTEOARTHRITIS
     Dosage: 600MG TABLETS THREE TIMES A DAY
     Route: 048
     Dates: start: 2001

REACTIONS (7)
  - Drug ineffective [Unknown]
  - Weight increased [Unknown]
  - Pain [Unknown]
  - Road traffic accident [Unknown]
  - Somnolence [Unknown]
  - Myocardial infarction [Unknown]
  - Activities of daily living impaired [Recovering/Resolving]

NARRATIVE: CASE EVENT DATE: 2001
